FAERS Safety Report 6550761-0 (Version None)
Quarter: 2010Q1

REPORT INFORMATION
  Report Type: 
  Country: None (occurrence: None)
  Receive Date: 20100125
  Receipt Date: 20090216
  Transmission Date: 20100710
  Serious: Yes (Other)
  Sender: FDA-Public Use
  Company Number: US-TYCO HEALTHCARE/MALLINCKRODT-T200900424

PATIENT
  Age: 12 Year
  Sex: Male
  Weight: 58.4 kg

DRUGS (4)
  1. OPTIRAY 350 [Suspect]
     Indication: COMPUTERISED TOMOGRAM
     Dosage: 100 ML (CC), SINGLE
     Route: 042
     Dates: start: 20090213, end: 20090213
  2. STRATTERA [Concomitant]
     Dosage: UNK
     Route: 048
  3. ZOLOFT [Concomitant]
     Dosage: UNK
     Route: 048
  4. RISPERDAL [Concomitant]
     Dosage: 25 MG, BID
     Route: 048

REACTIONS (2)
  - DYSPNOEA [None]
  - URTICARIA [None]
